FAERS Safety Report 21805804 (Version 2)
Quarter: 2023Q1

REPORT INFORMATION
  Report Type: Spontaneous
  Country: CA (occurrence: None)
  Receive Date: 20230102
  Receipt Date: 20230103
  Transmission Date: 20230418
  Serious: Yes (Hospitalization, Other)
  Sender: FDA-Public Use
  Company Number: CA-Orion Corporation ORION PHARMA-ENT 2022-0109

PATIENT
  Age: 84 Year
  Sex: Male

DRUGS (2)
  1. ENTACAPONE [Suspect]
     Active Substance: ENTACAPONE
     Indication: Parkinson^s disease
     Dosage: PRESCRIBED ENTACAPONE SEVERAL YEARS EARLIER, BUT PATIENT DEVELOPED DIARRHOEA DURING THERAPY AND DRUG
     Route: 065
  2. ENTACAPONE [Suspect]
     Active Substance: ENTACAPONE
     Dosage: SECOND TRIAL OF TREATMENT, PATIENT TOOK ONLY 1 DOSE AND DIARRHOEA PERSISTED FOR 10 DAYS BEFORE PRESE
     Route: 065

REACTIONS (2)
  - Colitis microscopic [Recovering/Resolving]
  - Drug hypersensitivity [Recovering/Resolving]
